FAERS Safety Report 20725102 (Version 3)
Quarter: 2023Q1

REPORT INFORMATION
  Report Type: Spontaneous
  Country: US (occurrence: US)
  Receive Date: 20220419
  Receipt Date: 20230320
  Transmission Date: 20230417
  Serious: Yes (Other)
  Sender: FDA-Public Use
  Company Number: US-PFIZER INC-202200580637

PATIENT
  Age: 77 Year
  Sex: Female
  Weight: 80.272 kg

DRUGS (3)
  1. IBRANCE [Suspect]
     Active Substance: PALBOCICLIB
     Indication: Breast cancer metastatic
     Dosage: 100 MG, CYCLIC
     Dates: start: 202004, end: 20220211
  2. FULVESTRANT [Concomitant]
     Active Substance: FULVESTRANT
     Dosage: UNK
     Dates: start: 202004
  3. XGEVA [Concomitant]
     Active Substance: DENOSUMAB
     Dosage: UNK
     Dates: start: 202004

REACTIONS (9)
  - Infection [Unknown]
  - Functional gastrointestinal disorder [Unknown]
  - Constipation [Unknown]
  - Frustration tolerance decreased [Unknown]
  - Gingival pain [Unknown]
  - Hyperhidrosis [Unknown]
  - Hot flush [Unknown]
  - Hypoacusis [Unknown]
  - Exostosis [Unknown]

NARRATIVE: CASE EVENT DATE: 20200101
